FAERS Safety Report 10234140 (Version 3)
Quarter: 2014Q2

REPORT INFORMATION
  Report Type: Report from Study
  Country: US (occurrence: US)
  Receive Date: 20140612
  Receipt Date: 20140627
  Transmission Date: 20141212
  Serious: Yes (Congenital Anomaly)
  Sender: FDA-Public Use
  Company Number: US-VIIV HEALTHCARE LIMITED-A1076797A

PATIENT
  Age: 0 Year
  Sex: Male
  Weight: 2.5 kg

DRUGS (2)
  1. COMBIVIR [Suspect]
     Indication: HIV INFECTION
     Dosage: 2TAB PER DAY
     Route: 064
  2. KALETRA [Suspect]
     Indication: HIV INFECTION
     Dosage: 4U PER DAY
     Route: 064

REACTIONS (6)
  - Heart disease congenital [Unknown]
  - Coarctation of the aorta [Unknown]
  - Right ventricular hypertrophy [Unknown]
  - Pericardial effusion [Unknown]
  - Pleural effusion [Unknown]
  - Foetal exposure during pregnancy [Unknown]
